FAERS Safety Report 4340340-8 (Version None)
Quarter: 2004Q1

REPORT INFORMATION
  Report Type: 
  Country: None (occurrence: None)
  Receive Date: 20040330
  Receipt Date: 20040312
  Transmission Date: 20041129
  Serious: Yes (Hospitalization)
  Sender: FDA-Public Use
  Company Number: 601143

PATIENT
  Age: 51 Year
  Sex: Male

DRUGS (1)
  1. ADVATE (ANTIHEMOPHILIC FACTOR (RECOMBINANT), PLASMA/ ALBUMIN FREE METH [Suspect]
     Indication: FACTOR VIII DEFICIENCY
     Dosage: 1000 UNITS;
     Dates: start: 20040312, end: 20040312

REACTIONS (2)
  - ANAPHYLACTIC REACTION [None]
  - RHINITIS [None]
